FAERS Safety Report 13383574 (Version 3)
Quarter: 2018Q1

REPORT INFORMATION
  Report Type: Report from Study
  Country: US (occurrence: US)
  Receive Date: 20170329
  Receipt Date: 20180102
  Transmission Date: 20180508
  Serious: No
  Sender: FDA-Public Use
  Company Number: PHEH2017US009208

PATIENT
  Sex: Male

DRUGS (5)
  1. ILARIS [Suspect]
     Active Substance: CANAKINUMAB
     Dosage: EVERY 4 WEEKS
     Route: 065
     Dates: start: 20170225
  2. ILARIS [Suspect]
     Active Substance: CANAKINUMAB
     Dosage: EVERY 4 WEEKS
     Route: 065
     Dates: start: 20171122
  3. ILARIS [Suspect]
     Active Substance: CANAKINUMAB
     Dosage: EVERY 4 WEEKS
     Route: 065
     Dates: start: 20170629
  4. ILARIS [Suspect]
     Active Substance: CANAKINUMAB
     Indication: PRODUCT USED FOR UNKNOWN INDICATION
     Route: 065
  5. ILARIS [Suspect]
     Active Substance: CANAKINUMAB
     Dosage: EVERY 4 WEEKS
     Route: 065
     Dates: start: 20171223

REACTIONS (1)
  - Inappropriate schedule of drug administration [Unknown]
